FAERS Safety Report 4511591-4 (Version None)
Quarter: 2004Q4

REPORT INFORMATION
  Report Type: 
  Country: None (occurrence: None)
  Receive Date: 20041129
  Receipt Date: 20041012
  Transmission Date: 20050328
  Serious: Yes (Hospitalization)
  Sender: FDA-Public Use
  Company Number: US-BRISTOL-MYERS SQUIBB COMPANY-12728762

PATIENT
  Age: 56 Year
  Sex: Male
  Weight: 85 kg

DRUGS (5)
  1. ABILIFY [Suspect]
     Indication: SCHIZOAFFECTIVE DISORDER
     Route: 048
     Dates: start: 20040909, end: 20040909
  2. ATENOLOL [Concomitant]
  3. MIRTAZAPINE [Concomitant]
  4. TRAMADOL [Concomitant]
     Indication: BACK PAIN
     Dosage: AS NEEDED
  5. ASPIRIN [Concomitant]
     Indication: BACK PAIN
     Route: 048

REACTIONS (1)
  - ORTHOSTATIC HYPOTENSION [None]
